FAERS Safety Report 7304503-1 (Version None)
Quarter: 2011Q1

REPORT INFORMATION
  Report Type: 
  Country: None (occurrence: None)
  Receive Date: 20110221
  Receipt Date: 20110210
  Transmission Date: 20110831
  Serious: Yes (Hospitalization)
  Sender: FDA-Public Use
  Company Number: JP-SANOFI-AVENTIS-2010SA063647

PATIENT
  Age: 66 Year
  Sex: Male
  Weight: 48.5 kg

DRUGS (12)
  1. GASTER [Concomitant]
     Indication: PROPHYLAXIS
     Route: 048
     Dates: start: 20100630
  2. OXALIPLATIN [Suspect]
     Indication: COLON CANCER
     Route: 042
     Dates: start: 20100607, end: 20100607
  3. XELODA [Suspect]
     Indication: COLON CANCER
     Route: 048
     Dates: start: 20100607
  4. XELODA [Suspect]
     Route: 048
     Dates: start: 20100705, end: 20100719
  5. DEXAMETHASONE [Suspect]
     Indication: PROPHYLAXIS
     Route: 048
     Dates: start: 20100607, end: 20100817
  6. OXALIPLATIN [Suspect]
     Route: 042
     Dates: start: 20100816, end: 20100816
  7. OXALIPLATIN [Suspect]
     Route: 042
     Dates: start: 20100705, end: 20100705
  8. DEXAMETHASONE SODIUM PHOSPHATE [Concomitant]
     Indication: PROPHYLAXIS
     Route: 041
  9. XELODA [Suspect]
     Route: 048
     Dates: start: 20100816, end: 20100830
  10. AVASTIN [Suspect]
     Indication: COLON CANCER
     Route: 042
     Dates: start: 20100607, end: 20100607
  11. AVASTIN [Suspect]
     Route: 042
     Dates: start: 20100830, end: 20100830
  12. FERROUS SULFATE TAB [Concomitant]
     Route: 048
     Dates: start: 20100622

REACTIONS (1)
  - GASTRIC ULCER HAEMORRHAGE [None]
